FAERS Safety Report 5479813-3 (Version None)
Quarter: 2007Q4

REPORT INFORMATION
  Report Type: 
  Country: None (occurrence: None)
  Receive Date: 20071008
  Receipt Date: 20070928
  Transmission Date: 20080405
  Serious: Yes (Other)
  Sender: FDA-Public Use
  Company Number: US-SHR-US-2007-006381

PATIENT
  Age: 56 Year
  Sex: Male

DRUGS (38)
  1. MAGNEVIST [Suspect]
     Indication: NUCLEAR MAGNETIC RESONANCE IMAGING BRAIN
     Dosage: 20 ML, 1 DOSE
     Route: 042
     Dates: start: 20010625, end: 20010625
  2. MAGNEVIST [Suspect]
     Dosage: 20 ML, 1 DOSE
     Route: 042
     Dates: start: 20010911, end: 20010911
  3. MAGNEVIST [Suspect]
     Dosage: 20 ML, 1 DOSE
     Route: 042
     Dates: start: 20011004, end: 20011004
  4. MAGNEVIST [Suspect]
     Dosage: 20 ML, 1 DOSE
     Route: 042
     Dates: start: 20030731, end: 20030731
  5. COLACE [Concomitant]
  6. ZANTAC [Concomitant]
  7. METOPROLOL TARTRATE [Concomitant]
  8. SERTRALINE [Concomitant]
  9. MEGACE [Concomitant]
  10. REMERON [Concomitant]
  11. SILVADENE [Concomitant]
  12. MICONAZOLE [Concomitant]
  13. TYLENOL W/ CODEINE NO. 3 [Concomitant]
  14. FLUCONAZOLE [Concomitant]
  15. PREDNISONE [Concomitant]
  16. LACTULOSE [Concomitant]
  17. NEUPOGEN [Concomitant]
  18. NPH INSULIN [Concomitant]
  19. REGULAR INSULIN [Concomitant]
  20. DILTIAZEM [Concomitant]
  21. CELEXA [Concomitant]
  22. COUMADIN [Concomitant]
  23. DIOVAN [Concomitant]
  24. DOXAZOSIN MESYLATE [Concomitant]
  25. FOLATE SODIUM [Concomitant]
  26. LASIX [Concomitant]
  27. LIPITOR [Concomitant]
  28. ZOLOFT [Concomitant]
  29. LOPID [Concomitant]
  30. CONTRAST MEDIA [Concomitant]
     Dates: start: 20010620, end: 20010620
  31. CONTRAST MEDIA [Concomitant]
     Dates: start: 20010624, end: 20010624
  32. CONTRAST MEDIA [Concomitant]
     Dates: start: 20010625, end: 20010625
  33. CONTRAST MEDIA [Concomitant]
     Dates: start: 20010628, end: 20010628
  34. CONTRAST MEDIA [Concomitant]
     Dates: start: 20010629, end: 20010629
  35. GALLIUM (67 GA) CITRATE [Concomitant]
     Dosage: 299 MBQ, 1 DOSE
     Dates: start: 20010801, end: 20010801
  36. ULTRAVIST 240 [Concomitant]
     Indication: VENOGRAM
     Dosage: 10 ML, 1 DOSE
     Dates: start: 20011005, end: 20011005
  37. TECHNETIUM (99M TC) SESTAMIBI [Concomitant]
     Dosage: 1504 MBQ, 1 DOSE
     Route: 042
     Dates: start: 20040904, end: 20040904
  38. ISOVUE-128 [Concomitant]
     Dosage: 10 ML, 1 DOSE
     Route: 042
     Dates: start: 20051028, end: 20051028

REACTIONS (1)
  - NEPHROGENIC SYSTEMIC FIBROSIS [None]
